FAERS Safety Report 5073255-0 (Version None)
Quarter: 2006Q3

REPORT INFORMATION
  Report Type: 
  Country: None (occurrence: None)
  Receive Date: 20060802
  Receipt Date: 20060718
  Transmission Date: 20061208
  Serious: Yes (Other)
  Sender: FDA-Public Use
  Company Number: US200607003314

PATIENT
  Age: 9 Year
  Sex: Male

DRUGS (2)
  1. STRATTERA [Suspect]
     Dosage: 60 MG, ORAL
     Route: 048
     Dates: start: 20040101
  2. ZOLOFT [Concomitant]

REACTIONS (3)
  - BELLIGERENCE [None]
  - INCOHERENT [None]
  - LOSS OF CONSCIOUSNESS [None]
